FAERS Safety Report 8828338 (Version 2)
Quarter: 2013Q1

REPORT INFORMATION
  Report Type: Spontaneous
  Country: ES (occurrence: ES)
  Receive Date: 20121005
  Receipt Date: 20130312
  Transmission Date: 20140127
  Serious: Yes (Death, Hospitalization)
  Sender: FDA-Public Use
  Company Number: ES-PFIZER INC-2012243696

PATIENT
  Age: 59 Year
  Sex: Female

DRUGS (3)
  1. FLUOROURACIL [Suspect]
     Indication: RECTAL ADENOCARCINOMA
  2. FOLINIC ACID [Concomitant]
     Indication: RECTAL ADENOCARCINOMA
  3. OXALIPLATIN [Concomitant]
     Indication: RECTAL ADENOCARCINOMA

REACTIONS (2)
  - Hyperammonaemic encephalopathy [Fatal]
  - Coma [Unknown]
